FAERS Safety Report 10167159 (Version 1)
Quarter: 2014Q2

REPORT INFORMATION
  Report Type: Spontaneous
  Country: US (occurrence: None)
  Receive Date: 20140509
  Receipt Date: 20140509
  Transmission Date: 20141212
  Serious: Yes (Disabling)
  Sender: FDA-Public Use
  Company Number: None

PATIENT
  Age: 36 Year
  Sex: Male
  Weight: 79.38 kg

DRUGS (1)
  1. CIPRO [Suspect]
     Indication: PROSTATE INFECTION
     Route: 048
     Dates: start: 20140505, end: 20140506

REACTIONS (5)
  - Anxiety [None]
  - Insomnia [None]
  - Nightmare [None]
  - Nausea [None]
  - Myalgia [None]
